FAERS Safety Report 8163874-7 (Version None)
Quarter: 2012Q1

REPORT INFORMATION
  Report Type: 
  Country: None (occurrence: None)
  Receive Date: 20120224
  Receipt Date: 20120222
  Transmission Date: 20120608
  Serious: Yes (Hospitalization)
  Sender: FDA-Public Use
  Company Number: PHEH2012US002945

PATIENT
  Sex: Female
  Weight: 45.986 kg

DRUGS (6)
  1. AFINITOR [Suspect]
     Indication: PRIMITIVE NEUROECTODERMAL TUMOUR
  2. METHADONE HCL [Concomitant]
     Indication: PAIN
     Dosage: UNK UKN, UNK
     Route: 048
  3. SINGULAIR [Concomitant]
     Dosage: UNK UKN, UNK
  4. AFINITOR [Suspect]
     Indication: MALIGNANT NEOPLASM OF ISLETS OF LANGERHANS
     Dosage: 10 MG, QD
     Route: 048
     Dates: start: 20120117
  5. DOXYCYCLINE [Concomitant]
     Dosage: UNK UKN, UNK
  6. ANTIBIOTICS [Concomitant]
     Dosage: UNK UKN, UNK

REACTIONS (7)
  - AXILLARY VEIN THROMBOSIS [None]
  - OEDEMA PERIPHERAL [None]
  - VARICOSE VEIN [None]
  - SUBCLAVIAN VEIN THROMBOSIS [None]
  - JUGULAR VEIN THROMBOSIS [None]
  - LOCALISED OEDEMA [None]
  - TENDERNESS [None]
